FAERS Safety Report 9836522 (Version 4)
Quarter: 2014Q2

REPORT INFORMATION
  Report Type: Report from Study
  Country: CA (occurrence: CA)
  Receive Date: 20140123
  Receipt Date: 20140623
  Transmission Date: 20141212
  Serious: Yes (Hospitalization)
  Sender: FDA-Public Use
  Company Number: CA-ROCHE-1335112

PATIENT
  Age: 76 Year
  Sex: Male

DRUGS (9)
  1. RITUXAN [Suspect]
     Indication: RHEUMATOID ARTHRITIS
     Dosage: FREQUNECY : DAY 1 AND DAY 15.
     Route: 042
     Dates: start: 20121107, end: 20121107
  2. DIPHENHYDRAMINE HCL [Concomitant]
     Indication: PREMEDICATION
     Route: 048
     Dates: start: 20121107, end: 20121107
  3. ACETAMINOPHEN [Concomitant]
     Indication: PREMEDICATION
     Route: 048
     Dates: start: 20121107, end: 20121107
  4. METHYLPREDNISOLONE [Concomitant]
     Indication: PREMEDICATION
     Route: 042
     Dates: start: 20121107, end: 20121107
  5. METHOTREXATE [Concomitant]
  6. PLAQUENIL [Concomitant]
  7. FOLIC ACID [Concomitant]
  8. DOMPERIDONE [Concomitant]
  9. SPIRIVA [Concomitant]

REACTIONS (5)
  - Pleural effusion [Recovered/Resolved]
  - Pelvic fracture [Unknown]
  - Fall [Unknown]
  - Arthralgia [Not Recovered/Not Resolved]
  - Musculoskeletal stiffness [Not Recovered/Not Resolved]
